FAERS Safety Report 24784158 (Version 1)
Quarter: 2024Q4

REPORT INFORMATION
  Report Type: Spontaneous
  Country: US (occurrence: None)
  Receive Date: 20241227
  Receipt Date: 20241227
  Transmission Date: 20250115
  Serious: No
  Sender: Public
  Company Number: None

PATIENT
  Age: 27 Year
  Sex: Female

DRUGS (1)
  1. ZURZUVAE [Suspect]
     Active Substance: ZURANOLONE
     Indication: Perinatal depression
     Dosage: ?50 MG AT BEDTIME ORAL
     Route: 048
     Dates: start: 20241223

REACTIONS (4)
  - Anger [None]
  - Hypersomnia [None]
  - Fatigue [None]
  - Depressed level of consciousness [None]

NARRATIVE: CASE EVENT DATE: 20241224
